FAERS Safety Report 6306650-X (Version None)
Quarter: 2009Q3

REPORT INFORMATION
  Report Type: 
  Country: None (occurrence: None)
  Receive Date: 20090812
  Receipt Date: 20090807
  Transmission Date: 20100115
  Serious: Yes (Life-Threatening)
  Sender: FDA-Public Use
  Company Number: B0588055A

PATIENT
  Sex: Female
  Weight: 13 kg

DRUGS (7)
  1. ZIDOVUDINE [Suspect]
     Indication: HIV INFECTION
     Dosage: 120MG TWICE PER DAY
     Dates: start: 20090701, end: 20090805
  2. ABACAVIR [Suspect]
     Indication: HIV INFECTION
     Dosage: 120MG TWICE PER DAY
     Dates: start: 20090701
  3. LAMIVUDINE [Suspect]
     Indication: HIV INFECTION
     Dosage: 60MG TWICE PER DAY
     Dates: start: 20090701
  4. FOLIC ACID [Concomitant]
  5. FERROUS SULFATE TAB [Concomitant]
  6. COTRIM [Concomitant]
     Dosage: 240MG PER DAY
     Dates: start: 20090701
  7. NEVIRAPINE [Concomitant]
     Dates: start: 20090806

REACTIONS (7)
  - ANAEMIA [None]
  - BACTERAEMIA [None]
  - IRRITABILITY [None]
  - NEUTROPENIA [None]
  - PALLOR [None]
  - PYREXIA [None]
  - SWELLING FACE [None]
